FAERS Safety Report 16129481 (Version 1)
Quarter: 2019Q1

REPORT INFORMATION
  Report Type: Spontaneous
  Country: US (occurrence: US)
  Receive Date: 20190328
  Receipt Date: 20190328
  Transmission Date: 20190418
  Serious: Yes (Other)
  Sender: FDA-Public Use
  Company Number: US-LA JOLLA PHARMACEUTICAL COMPANY-0000287

PATIENT
  Age: 33 Year
  Sex: Male

DRUGS (5)
  1. GIAPREZA [Suspect]
     Active Substance: ANGIOTENSIN II
     Indication: SEPTIC SHOCK
     Dosage: UNK
  2. PHENYLEPHRINE [Concomitant]
     Active Substance: PHENYLEPHRINE\PHENYLEPHRINE HYDROCHLORIDE
  3. NOREPINEPHRINE. [Concomitant]
     Active Substance: NOREPINEPHRINE
  4. EPINEPHRINE. [Concomitant]
     Active Substance: EPINEPHRINE
  5. VASOPRESSIN. [Concomitant]
     Active Substance: VASOPRESSIN

REACTIONS (4)
  - Ventricular hypokinesia [Unknown]
  - Electrocardiogram ST segment elevation [Unknown]
  - Troponin increased [Unknown]
  - Ejection fraction decreased [Recovering/Resolving]
